FAERS Safety Report 5840340-2 (Version None)
Quarter: 2008Q3

REPORT INFORMATION
  Report Type: 
  Country: None (occurrence: None)
  Receive Date: 20080807
  Receipt Date: 20080807
  Transmission Date: 20090109
  Serious: Yes (Hospitalization)
  Sender: FDA-Public Use
  Company Number: None

PATIENT
  Age: 74 Year
  Sex: Female
  Weight: 69.9 kg

DRUGS (5)
  1. AVASTIN [Suspect]
     Indication: BREAST CANCER
     Dosage: 1050MG Q3 WEEKS
     Route: 042
     Dates: start: 20080528, end: 20080714
  2. LETROZOLE [Concomitant]
  3. ZESTRIL [Concomitant]
  4. TOPROL-XL [Concomitant]
  5. MAXZIDE [Concomitant]

REACTIONS (6)
  - AORTIC STENOSIS [None]
  - APHASIA [None]
  - CARDIAC FAILURE [None]
  - CARDIAC MURMUR [None]
  - CONFUSIONAL STATE [None]
  - TRANSIENT ISCHAEMIC ATTACK [None]
